FAERS Safety Report 4472806-4 (Version None)
Quarter: 2004Q4

REPORT INFORMATION
  Report Type: 
  Country: None (occurrence: None)
  Receive Date: 20041013
  Receipt Date: 20040928
  Transmission Date: 20050328
  Serious: Yes (Hospitalization)
  Sender: FDA-Public Use
  Company Number: 200419599GDDC

PATIENT
  Age: 44 Year
  Sex: Female

DRUGS (2)
  1. MINIRIN [Suspect]
     Indication: DIABETES INSIPIDUS
     Route: 045
  2. TRIMETHOPRIM [Concomitant]
     Indication: CYSTITIS
     Dosage: DOSE: UNK
     Dates: start: 20040901, end: 20040905

REACTIONS (1)
  - OLIGURIA [None]
